FAERS Safety Report 7381565-7 (Version None)
Quarter: 2011Q1

REPORT INFORMATION
  Report Type: 
  Country: None (occurrence: None)
  Receive Date: 20110329
  Receipt Date: 20110325
  Transmission Date: 20110831
  Serious: Yes (Hospitalization)
  Sender: FDA-Public Use
  Company Number: US-BRISTOL-MYERS SQUIBB COMPANY-15636178

PATIENT
  Age: 60 Year
  Sex: Male
  Weight: 84 kg

DRUGS (3)
  1. GM-CSF [Suspect]
     Indication: MALIGNANT MELANOMA
  2. IPILIMUMAB [Suspect]
     Indication: MALIGNANT MELANOMA
     Dosage: LAST DOSE ON 04MAR2011,CYC 1-4:10MG/KG OVER 90MIN ON DAY1,C5:10MG/KG OVER 90MIN ON D1 Q12 WEEK
     Route: 042
     Dates: start: 20110211
  3. LIPITOR [Suspect]

REACTIONS (2)
  - BACK PAIN [None]
  - MUSCULAR WEAKNESS [None]
